FAERS Safety Report 14354851 (Version 2)
Quarter: 2018Q1

REPORT INFORMATION
  Report Type: Spontaneous
  Country: IT (occurrence: IT)
  Receive Date: 20180105
  Receipt Date: 20180208
  Transmission Date: 20180509
  Serious: Yes (Other)
  Sender: FDA-Public Use
  Company Number: IT-AUROBINDO-AUR-APL-2017-47091

PATIENT
  Sex: Female

DRUGS (1)
  1. IBUPROFEN AUROBINDO 600MG [Suspect]
     Active Substance: IBUPROFEN
     Indication: PAIN
     Dosage: 600 MG, UNK
     Route: 048

REACTIONS (4)
  - Eye swelling [Unknown]
  - Dysuria [Unknown]
  - Peripheral swelling [Unknown]
  - Urinary retention [Unknown]
